FAERS Safety Report 12800539 (Version 2)
Quarter: 2017Q1

REPORT INFORMATION
  Report Type: Report from Study
  Country: None (occurrence: CO)
  Receive Date: 20160930
  Receipt Date: 20170103
  Transmission Date: 20170428
  Serious: Yes (Other)
  Sender: FDA-Public Use
  Company Number: CO-ABBVIE-16K-036-1741098-00

PATIENT
  Age: 41 Year
  Sex: Male
  Weight: 83 kg

DRUGS (1)
  1. HUMIRA [Suspect]
     Active Substance: ADALIMUMAB
     Indication: ANKYLOSING SPONDYLITIS
     Route: 058
     Dates: start: 20131101, end: 20160817

REACTIONS (6)
  - Dental necrosis [Not Recovered/Not Resolved]
  - Tooth infection [Not Recovered/Not Resolved]
  - Headache [Not Recovered/Not Resolved]
  - Toothache [Not Recovered/Not Resolved]
  - Lung infection [Not Recovered/Not Resolved]
  - Peripheral nerve infection [Not Recovered/Not Resolved]

NARRATIVE: CASE EVENT DATE: 20160822
